FAERS Safety Report 4647963-7 (Version None)
Quarter: 2005Q2

REPORT INFORMATION
  Report Type: 
  Country: None (occurrence: None)
  Receive Date: 20050428
  Receipt Date: 20050422
  Transmission Date: 20051028
  Serious: Yes (Disabling)
  Sender: FDA-Public Use
  Company Number: PHRM2005FR01410

PATIENT
  Age: 70 Year
  Sex: Female

DRUGS (4)
  1. FRACTAL [Suspect]
     Indication: HYPERCHOLESTEROLAEMIA
     Dosage: 20 MG, QD
     Route: 048
     Dates: start: 20041022, end: 20041227
  2. LEVOTHYROXINE SODIUM [Concomitant]
     Dosage: 50 A?G/DAY
     Route: 048
     Dates: start: 20041022
  3. KARDEGIC [Concomitant]
     Dosage: 1 DF, QD
     Route: 048
     Dates: start: 20041022
  4. TRIVASTAL [Concomitant]
     Dosage: 50 MG, QD
     Route: 048

REACTIONS (3)
  - GAIT DISTURBANCE [None]
  - TENDON DISORDER [None]
  - TENDONITIS [None]
